FAERS Safety Report 8995838 (Version 1)
Quarter: 2013Q1

REPORT INFORMATION
  Report Type: Spontaneous
  Country: US (occurrence: US)
  Receive Date: 20130103
  Receipt Date: 20130103
  Transmission Date: 20140127
  Serious: Yes (Other)
  Sender: FDA-Public Use
  Company Number: PHEH2012US024921

PATIENT
  Sex: Female

DRUGS (2)
  1. GLEEVEC [Suspect]
     Indication: CHRONIC GRAFT VERSUS HOST DISEASE
     Dosage: 400 MG, DAILY
     Route: 048
     Dates: start: 20121119
  2. GLEEVEC [Suspect]
     Indication: MYELOFIBROSIS
     Dosage: 100 MG, DAILY
     Route: 048

REACTIONS (4)
  - Graft versus host disease [Unknown]
  - Abdominal discomfort [Unknown]
  - Abdominal pain upper [Unknown]
  - Constipation [Unknown]
